FAERS Safety Report 5114153-3 (Version None)
Quarter: 2006Q3

REPORT INFORMATION
  Report Type: 
  Country: None (occurrence: None)
  Receive Date: 20060925
  Receipt Date: 20060918
  Transmission Date: 20061208
  Serious: Yes (Hospitalization)
  Sender: FDA-Public Use
  Company Number: US-JNJFOC-20060801194

PATIENT
  Sex: Female

DRUGS (8)
  1. HALDOL SOLUTAB [Suspect]
     Route: 030
  2. HALDOL SOLUTAB [Suspect]
     Indication: AGITATION
     Route: 030
  3. RISPERDAL [Suspect]
     Indication: DRUG USE FOR UNKNOWN INDICATION
  4. NEURONTIN [Concomitant]
     Route: 048
  5. BUSPAR [Concomitant]
     Route: 048
  6. ARICEPT [Concomitant]
     Route: 048
  7. ZYPREXA [Concomitant]
     Route: 048
  8. ATIVAN [Concomitant]
     Route: 048

REACTIONS (6)
  - ABASIA [None]
  - CATATONIA [None]
  - DYSPHAGIA [None]
  - HALLUCINATION [None]
  - LETHARGY [None]
  - THROAT TIGHTNESS [None]
